FAERS Safety Report 25687695 (Version 1)
Quarter: 2025Q3

REPORT INFORMATION
  Report Type: Spontaneous
  Country: US (occurrence: US)
  Receive Date: 20250817
  Receipt Date: 20250817
  Transmission Date: 20251020
  Serious: Yes (Other)
  Sender: MACLEODS
  Company Number: US-MACLEODS PHARMA-MAC2025054680

PATIENT

DRUGS (3)
  1. DOXYCYCLINE [Suspect]
     Active Substance: DOXYCYCLINE
     Indication: Caesarean section
     Route: 065
  2. DOXYCYCLINE [Suspect]
     Active Substance: DOXYCYCLINE
     Indication: Postoperative wound infection
  3. HYDROXYCHLOROQUINE [Concomitant]
     Active Substance: HYDROXYCHLOROQUINE
     Route: 065

REACTIONS (6)
  - Toxic epidermal necrolysis [Unknown]
  - Neuropathy peripheral [Unknown]
  - Ulcerative keratitis [Recovering/Resolving]
  - Conjunctivitis [Recovering/Resolving]
  - Keratitis [Recovering/Resolving]
  - Onychomadesis [Unknown]
